FAERS Safety Report 10094831 (Version 3)
Quarter: 2014Q4

REPORT INFORMATION
  Report Type: Spontaneous
  Country: US (occurrence: US)
  Receive Date: 20140422
  Receipt Date: 20141027
  Transmission Date: 20150528
  Serious: Yes (Hospitalization, Congenital Anomaly, Other)
  Sender: FDA-Public Use
  Company Number: US-PFIZER INC-2014110691

PATIENT
  Sex: Female
  Weight: 1.02 kg

DRUGS (20)
  1. TOPAMAX [Suspect]
     Active Substance: TOPIRAMATE
     Indication: MIGRAINE
     Dosage: 100 MG, 4X/DAY
     Route: 064
     Dates: start: 200409, end: 200712
  2. CALCIUM-MAGNESIUM [Concomitant]
     Active Substance: CALCIUM\MAGNESIUM
     Dosage: 750-465 MG ONCE DAILY
     Route: 064
  3. METFORMIN HCL [Suspect]
     Active Substance: METFORMIN HYDROCHLORIDE
     Indication: POLYCYSTIC OVARIES
     Dosage: 1000 MG, 2X/DAY, AFTER MORNING AND DINNER MEALS
     Route: 064
  4. IMITREX [Suspect]
     Active Substance: SUMATRIPTAN\SUMATRIPTAN SUCCINATE
     Indication: POLYCYSTIC OVARIES
     Dosage: UNK
     Route: 064
  5. PHENERGAN [Suspect]
     Active Substance: PROMETHAZINE HYDROCHLORIDE
     Indication: VOMITING
     Dosage: 25 MG, ONCE IN 12 HOURS
     Route: 064
  6. XYLOCAINE [Suspect]
     Active Substance: LIDOCAINE HYDROCHLORIDE
     Dosage: 10 MG/ML
     Route: 064
  7. IMITREX [Suspect]
     Active Substance: SUMATRIPTAN\SUMATRIPTAN SUCCINATE
     Indication: MIGRAINE
     Dosage: 100 MG, AS NEEDED
     Route: 064
     Dates: start: 2003
  8. PHENERGAN [Suspect]
     Active Substance: PROMETHAZINE HYDROCHLORIDE
     Indication: NAUSEA
  9. CLARITIN [Suspect]
     Active Substance: LORATADINE
     Indication: HYPERSENSITIVITY
     Dosage: 10 MG, 1X/DAY
     Route: 064
  10. NAPROSYN [Suspect]
     Active Substance: NAPROXEN
     Indication: PAIN
     Route: 064
     Dates: start: 2007
  11. HYDROCORTISONE ACETATE. [Suspect]
     Active Substance: HYDROCORTISONE ACETATE
     Dosage: DOSAGE FORM: LOTION, MOTHER^S DOSING.
     Route: 064
  12. DILAUDID [Suspect]
     Active Substance: HYDROMORPHONE HYDROCHLORIDE
     Indication: HEADACHE
  13. MOTRIN [Suspect]
     Active Substance: IBUPROFEN
     Indication: MIGRAINE
     Dosage: 800 MG, EVERY 6-8 HOURS
     Route: 064
  14. DILAUDID [Suspect]
     Active Substance: HYDROMORPHONE HYDROCHLORIDE
     Indication: MIGRAINE
     Dosage: 4 MG, ONCE EVERY 6 HOURS
     Route: 064
  15. DILAUDID [Suspect]
     Active Substance: HYDROMORPHONE HYDROCHLORIDE
     Indication: PAIN
  16. NADOLOL. [Suspect]
     Active Substance: NADOLOL
     Dosage: 40 MG, 2X/DAY
     Route: 064
  17. AMOXICILLIN. [Suspect]
     Active Substance: AMOXICILLIN
     Dosage: 500 MG, 3X/DAY
     Route: 064
  18. CLOMID [Suspect]
     Active Substance: CLOMIPHENE CITRATE
     Indication: INFERTILITY
     Dosage: DOSAGE FORM: UNSPECIFIED, MOTHER^S DOSING
     Route: 064
     Dates: start: 200710, end: 200712
  19. TYLENOL WITH CODEINE [Suspect]
     Active Substance: ACETAMINOPHEN\CODEINE PHOSPHATE
     Indication: PAIN
     Dosage: 1 TO 2 TABLETS EVERY 4-6 HOURS AS NECESSARY
     Route: 064
  20. KENALOG [Suspect]
     Active Substance: TRIAMCINOLONE ACETONIDE
     Dosage: 40 MG/ML
     Route: 064

REACTIONS (5)
  - Femoral anteversion [Unknown]
  - Premature baby [Unknown]
  - Exomphalos [Recovered/Resolved]
  - Maternal exposure during pregnancy [Recovered/Resolved]
  - Abdominal hernia [Recovered/Resolved]

NARRATIVE: CASE EVENT DATE: 20080608
